FAERS Safety Report 5888402-8 (Version None)
Quarter: 2008Q3

REPORT INFORMATION
  Report Type: 
  Country: None (occurrence: None)
  Receive Date: 20080918
  Receipt Date: 20080906
  Transmission Date: 20090109
  Serious: Yes (Other)
  Sender: FDA-Public Use
  Company Number: US-PFIZER INC-2008061506

PATIENT
  Sex: Female
  Weight: 71.2 kg

DRUGS (7)
  1. CHANTIX [Suspect]
     Indication: SMOKING CESSATION THERAPY
     Route: 048
     Dates: start: 20080606, end: 20080627
  2. AMBIEN [Suspect]
     Dates: end: 20080627
  3. LEXAPRO [Suspect]
     Dates: end: 20080627
  4. ZOLPIDEM TARTRATE [Concomitant]
  5. VALSARTAN [Concomitant]
  6. LISINOPRIL [Concomitant]
  7. LABETALOL HCL [Concomitant]

REACTIONS (6)
  - ABNORMAL BEHAVIOUR [None]
  - CRYING [None]
  - ILL-DEFINED DISORDER [None]
  - INCORRECT DOSE ADMINISTERED [None]
  - ROAD TRAFFIC ACCIDENT [None]
  - TRICHOTILLOMANIA [None]
